FAERS Safety Report 19982052 (Version 4)
Quarter: 2021Q4

REPORT INFORMATION
  Report Type: Spontaneous
  Country: CZ (occurrence: CZ)
  Receive Date: 20211022
  Receipt Date: 20211101
  Transmission Date: 20220303
  Serious: Yes (Death)
  Sender: FDA-Public Use
  Company Number: CZ-KOREA IPSEN PHARMA-2021-25715

PATIENT
  Age: 69 Year
  Sex: Male

DRUGS (4)
  1. LANREOTIDE ACETATE [Suspect]
     Active Substance: LANREOTIDE ACETATE
     Indication: Pancreatic neuroendocrine tumour
     Dosage: DOSE NOT REPORTED
     Route: 065
     Dates: start: 202002
  2. CISPLATIN [Concomitant]
     Active Substance: CISPLATIN
     Indication: Neuroendocrine tumour
  3. ETOPOSIDE [Concomitant]
     Active Substance: ETOPOSIDE
     Indication: Neuroendocrine tumour
  4. GRANULOCYTE COLONY-STIMULATING FACTOR NOS [Concomitant]
     Active Substance: GRANULOCYTE COLONY-STIMULATING FACTOR NOS
     Indication: Prophylaxis

REACTIONS (3)
  - Disease progression [Fatal]
  - Nodule [Unknown]
  - Erythema [Unknown]

NARRATIVE: CASE EVENT DATE: 20200401
